FAERS Safety Report 5928272-2 (Version None)
Quarter: 2008Q4

REPORT INFORMATION
  Report Type: 
  Country: None (occurrence: None)
  Receive Date: 20081022
  Receipt Date: 20081022
  Transmission Date: 20090506
  Serious: Yes (Hospitalization)
  Sender: FDA-Public Use
  Company Number: None

PATIENT
  Age: 91 Year

DRUGS (1)
  1. TEKTURNA [Suspect]
     Dosage: 150MG

REACTIONS (1)
  - OEDEMA [None]
